FAERS Safety Report 6887771-X (Version None)
Quarter: 2010Q3

REPORT INFORMATION
  Report Type: 
  Country: None (occurrence: None)
  Receive Date: 20100730
  Receipt Date: 20100722
  Transmission Date: 20110219
  Serious: Yes (Death, Hospitalization)
  Sender: FDA-Public Use
  Company Number: CL-ROCHE-716945

PATIENT
  Sex: Female
  Weight: 44 kg

DRUGS (5)
  1. PEGASYS [Suspect]
     Indication: HEPATITIS C
     Route: 058
     Dates: start: 20100607, end: 20100625
  2. OMEPRAZOLE [Concomitant]
     Route: 048
  3. CITALOPRAM HYDROBROMIDE [Concomitant]
  4. DILTIAZEM [Concomitant]
  5. MYCOPHENOLATE MOFETIL [Concomitant]
     Dosage: DRUG NAME: LINFONEX

REACTIONS (2)
  - ANAEMIA [None]
  - HEPATITIS C [None]
